FAERS Safety Report 5220901-4 (Version None)
Quarter: 2007Q1

REPORT INFORMATION
  Report Type: 
  Country: None (occurrence: None)
  Receive Date: 20070126
  Receipt Date: 20070119
  Transmission Date: 20070707
  Serious: Yes (Hospitalization)
  Sender: FDA-Public Use
  Company Number: KR-GLAXOSMITHKLINE-B0455646A

PATIENT
  Age: 24 Year
  Sex: Male

DRUGS (4)
  1. CIMETIDINE HCL [Suspect]
     Dates: start: 20070102, end: 20070104
  2. COLCHICINE [Suspect]
     Dates: start: 20070102, end: 20070104
  3. ALIBENDOL [Suspect]
     Dates: start: 20070102, end: 20070104
  4. ZYLORIC [Suspect]
     Dates: start: 20061215, end: 20070114

REACTIONS (6)
  - MUCOSAL ULCERATION [None]
  - PYREXIA [None]
  - RASH [None]
  - STEVENS-JOHNSON SYNDROME [None]
  - TONSILLITIS [None]
  - TRANSAMINASES INCREASED [None]
